FAERS Safety Report 7501263-6 (Version None)
Quarter: 2011Q2

REPORT INFORMATION
  Report Type: 
  Country: None (occurrence: None)
  Receive Date: 20110524
  Receipt Date: 20110512
  Transmission Date: 20111010
  Serious: Yes (Disabling)
  Sender: FDA-Public Use
  Company Number: US-ELI_LILLY_AND_COMPANY-US201105001686

PATIENT
  Age: 60 Year
  Sex: Female

DRUGS (5)
  1. NOVOLIN 70/30 [Concomitant]
     Dosage: UNK
  2. HUMULIN R [Suspect]
     Indication: DIABETES MELLITUS
     Dosage: 80 U, BID
  3. HUMULIN R [Suspect]
     Dosage: 80 U, BID
  4. HUMULIN N [Suspect]
     Dosage: 90 U, BID
  5. HUMULIN N [Suspect]
     Indication: DIABETES MELLITUS
     Dosage: 90 U, BID

REACTIONS (3)
  - DISABILITY [None]
  - NEEDLE ISSUE [None]
  - DRUG DISPENSING ERROR [None]
